FAERS Safety Report 14270798 (Version 1)
Quarter: 2017Q4

REPORT INFORMATION
  Report Type: Spontaneous
  Country: CH (occurrence: CH)
  Receive Date: 20171211
  Receipt Date: 20171211
  Transmission Date: 20180321
  Serious: Yes (Death, Congenital Anomaly, Other)
  Sender: FDA-Public Use
  Company Number: CH-OTSUKA-2016_001588

PATIENT
  Age: 0 Year
  Sex: Male
  Weight: 1.9 kg

DRUGS (1)
  1. ABILIFY [Suspect]
     Active Substance: ARIPIPRAZOLE
     Indication: PRODUCT USED FOR UNKNOWN INDICATION
     Dosage: 10 MG, QD
     Route: 064
     Dates: start: 20090307, end: 20091010

REACTIONS (9)
  - Multiple congenital abnormalities [Not Recovered/Not Resolved]
  - Post procedural haemorrhage [Not Recovered/Not Resolved]
  - Tetralogy of Fallot repair [Unknown]
  - Foetal exposure during pregnancy [Unknown]
  - Fallot^s tetralogy [Fatal]
  - Heart disease congenital [Not Recovered/Not Resolved]
  - Pericardial haemorrhage [Fatal]
  - Haemothorax [Fatal]
  - Premature baby [Not Recovered/Not Resolved]

NARRATIVE: CASE EVENT DATE: 200910
